FAERS Safety Report 23297867 (Version 1)
Quarter: 2023Q4

REPORT INFORMATION
  Report Type: Spontaneous
  Country: US (occurrence: US)
  Receive Date: 20231214
  Receipt Date: 20231214
  Transmission Date: 20240110
  Serious: Yes (Hospitalization, Other)
  Sender: FDA-Public Use
  Company Number: US-SA-SAC20231213000539

PATIENT
  Sex: Male
  Weight: 95.7 kg

DRUGS (22)
  1. DUPIXENT [Suspect]
     Active Substance: DUPILUMAB
     Indication: Asthma
     Dosage: 300 MG, QOW
     Route: 058
     Dates: start: 202309
  2. PANTOPRAZOLE SODIUM [Suspect]
     Active Substance: PANTOPRAZOLE SODIUM
  3. MUCINEX [Concomitant]
     Active Substance: GUAIFENESIN
  4. AZITHROMYCIN [Concomitant]
     Active Substance: AZITHROMYCIN
  5. PROAIR DIGIHALER [Concomitant]
     Active Substance: ALBUTEROL SULFATE
  6. AMLODIPINE BESYLATE [Concomitant]
     Active Substance: AMLODIPINE BESYLATE
  7. ROFLUMILAST [Concomitant]
     Active Substance: ROFLUMILAST
  8. CYANOCOBALAMIN [Concomitant]
     Active Substance: CYANOCOBALAMIN
  9. IRON [Concomitant]
     Active Substance: IRON
  10. LORATADINE [Concomitant]
     Active Substance: LORATADINE
  11. MONTELUKAST SODIUM [Concomitant]
     Active Substance: MONTELUKAST SODIUM
  12. BENZONATATE [Concomitant]
     Active Substance: BENZONATATE
  13. ALBUTEROL\IPRATROPIUM [Concomitant]
     Active Substance: ALBUTEROL\IPRATROPIUM
  14. ALLOPURINOL [Concomitant]
     Active Substance: ALLOPURINOL
  15. TAMSULOSIN HYDROCHLORIDE [Concomitant]
     Active Substance: TAMSULOSIN HYDROCHLORIDE
  16. TRELEGY ELLIPTA [Concomitant]
     Active Substance: FLUTICASONE FUROATE\UMECLIDINIUM BROMIDE\VILANTEROL TRIFENATATE
  17. PRAVASTATIN SODIUM [Concomitant]
     Active Substance: PRAVASTATIN SODIUM
  18. BUMETANIDE [Concomitant]
     Active Substance: BUMETANIDE
  19. MODERNA COVID-19 VACCINE [Concomitant]
     Active Substance: ELASOMERAN
  20. ABRYSVO [Concomitant]
     Active Substance: RECOMBINANT STABILIZED RSV A PREFUSION F ANTIGEN\RECOMBINANT STABILIZED RSV B PREFUSION F ANTIGEN
  21. GAMMAGARD [Concomitant]
     Active Substance: HUMAN IMMUNOGLOBULIN G
  22. FLUAD QUAD [Concomitant]

REACTIONS (7)
  - Small intestinal obstruction [Not Recovered/Not Resolved]
  - Diarrhoea [Not Recovered/Not Resolved]
  - Abdominal pain [Not Recovered/Not Resolved]
  - Vomiting [Not Recovered/Not Resolved]
  - Nausea [Not Recovered/Not Resolved]
  - Flatulence [Not Recovered/Not Resolved]
  - Condition aggravated [Not Recovered/Not Resolved]

NARRATIVE: CASE EVENT DATE: 20231101
